FAERS Safety Report 5456089-4 (Version None)
Quarter: 2007Q3

REPORT INFORMATION
  Report Type: 
  Country: None (occurrence: None)
  Receive Date: 20070918
  Receipt Date: 20070330
  Transmission Date: 20080115
  Serious: Yes (Other)
  Sender: FDA-Public Use
  Company Number: US-ASTRAZENECA-2006UW23945

PATIENT
  Age: 22651 Day
  Sex: Female
  Weight: 78.2 kg

DRUGS (8)
  1. SEROQUEL [Suspect]
     Route: 048
     Dates: start: 19970101
  2. ABILIFY [Concomitant]
  3. GEODON [Concomitant]
  4. HALDOL [Concomitant]
  5. RISPERDAL [Concomitant]
  6. THORAZINE [Concomitant]
  7. TRILAFON [Concomitant]
  8. ZYPREXA [Concomitant]

REACTIONS (1)
  - PANCREATITIS [None]
